FAERS Safety Report 14332677 (Version 1)
Quarter: 2017Q4

REPORT INFORMATION
  Report Type: Spontaneous
  Country: BR (occurrence: BR)
  Receive Date: 20171228
  Receipt Date: 20171228
  Transmission Date: 20180321
  Serious: Yes (Other)
  Sender: FDA-Public Use
  Company Number: BR-PFIZER INC-2017546548

PATIENT
  Age: 68 Year
  Sex: Female

DRUGS (2)
  1. LIPISTAT [Concomitant]
     Indication: CORONARY ARTERY DISEASE
     Dosage: UNK
  2. LYRICA [Suspect]
     Active Substance: PREGABALIN
     Indication: ANGINA PECTORIS
     Dosage: 75 MG, UNK
     Dates: start: 2015

REACTIONS (5)
  - Diabetes mellitus [Unknown]
  - Product use in unapproved indication [Unknown]
  - Hyperthyroidism [Unknown]
  - Insomnia [Recovered/Resolved]
  - Affect lability [Unknown]
